FAERS Safety Report 6886790-7 (Version None)
Quarter: 2010Q3

REPORT INFORMATION
  Report Type: 
  Country: None (occurrence: None)
  Receive Date: 20100730
  Receipt Date: 20100721
  Transmission Date: 20110219
  Serious: Yes (Other)
  Sender: FDA-Public Use
  Company Number: US-PFIZER INC-2010091530

PATIENT
  Sex: Female
  Weight: 88 kg

DRUGS (2)
  1. NORVASC [Suspect]
     Indication: HYPERTENSION
     Dosage: 5 MG, 1X/DAY
     Route: 048
  2. BENADRYL [Concomitant]
     Indication: SNEEZING
     Dosage: 25 MG, 2X/DAY
     Route: 048

REACTIONS (7)
  - ALOPECIA [None]
  - AMENORRHOEA [None]
  - DRUG INEFFECTIVE [None]
  - FEELING OF BODY TEMPERATURE CHANGE [None]
  - HAEMORRHAGE [None]
  - HAIR COLOUR CHANGES [None]
  - TOOTH DISORDER [None]
